FAERS Safety Report 23329368 (Version 1)
Quarter: 2023Q4

REPORT INFORMATION
  Report Type: Report from Study
  Country: IT (occurrence: IT)
  Receive Date: 20231222
  Receipt Date: 20231222
  Transmission Date: 20240109
  Serious: Yes (Other)
  Sender: FDA-Public Use
  Company Number: None

PATIENT

DRUGS (2)
  1. DICLOFENAC SODIUM [Suspect]
     Active Substance: DICLOFENAC\DICLOFENAC SODIUM
     Indication: Back pain
     Dosage: UNK (DOSAGE: 1 UNIT OF MEASUREMENT: DOSAGE UNIT ROUTE OF ADMINISTRATION: INTRAMUSCULAR)
     Route: 030
  2. BETAMETHASONE SODIUM PHOSPHATE [Suspect]
     Active Substance: BETAMETHASONE SODIUM PHOSPHATE
     Indication: Back pain
     Dosage: UNK (DOSAGE: 5 UNIT OF MEASUREMENT: DOSAGE UNIT ROUTE OF ADMINISTRATION: INTRAMUSCULAR)
     Route: 030

REACTIONS (1)
  - Abdominal pain upper [Recovering/Resolving]

NARRATIVE: CASE EVENT DATE: 20230306
